FAERS Safety Report 5737429-5 (Version None)
Quarter: 2008Q2

REPORT INFORMATION
  Report Type: 
  Country: None (occurrence: None)
  Receive Date: 20080514
  Receipt Date: 20080221
  Transmission Date: 20081010
  Serious: No
  Sender: FDA-Public Use
  Company Number: US-BRISTOL-MYERS SQUIBB COMPANY-14086094

PATIENT
  Age: 50 Year
  Sex: Female

DRUGS (2)
  1. IXEMPRA KIT [Suspect]
     Indication: BREAST CANCER
     Dosage: INFUSION STARTED IN DEC-2007; LAST INFUSION FEB 2008
     Route: 042
     Dates: start: 20071201
  2. XELODA [Suspect]
     Route: 048

REACTIONS (1)
  - DYSPNOEA EXERTIONAL [None]
